FAERS Safety Report 23264785 (Version 1)
Quarter: 2023Q4

REPORT INFORMATION
  Report Type: Report from Study
  Country: IT (occurrence: IT)
  Receive Date: 20231206
  Receipt Date: 20231206
  Transmission Date: 20240109
  Serious: Yes (Hospitalization)
  Sender: FDA-Public Use
  Company Number: None

PATIENT
  Age: 25 Year
  Sex: Male

DRUGS (6)
  1. CITALOPRAM [Suspect]
     Active Substance: CITALOPRAM HYDROBROMIDE
     Indication: Product used for unknown indication
     Dosage: TIME INTERVAL: TOTAL: DOSAGE: 56 CP ADMINISTRATION FREQUENCY: TOTAL ROUTE OF ADMINISTRATION: ORAL...
     Route: 048
  2. QUETIAPINE [Suspect]
     Active Substance: QUETIAPINE
     Indication: Product used for unknown indication
     Dosage: DOSAGE: 750?UNIT OF MEASUREMENT: MILLIGRAMS?ADMINISTRATION FREQUENCY: TOTAL?ROUTE OF ADMINISTRATION:
     Route: 048
  3. ARIPIPRAZOLE [Suspect]
     Active Substance: ARIPIPRAZOLE
     Indication: Product used for unknown indication
     Dosage: DOSAGE: 560?UNIT OF MEASUREMENT: MILLIGRAMS?ADMINISTRATION FREQUENCY: TOTAL?ROUTE OF ADMINISTRATION:
     Route: 048
  4. FLURAZEPAM HYDROCHLORIDE [Suspect]
     Active Substance: FLURAZEPAM HYDROCHLORIDE
     Indication: Product used for unknown indication
     Dosage: DOSAGE: 900?UNIT OF MEASUREMENT: MILLIGRAMS?ADMINISTRATION FREQUENCY: TOTAL?ROUTE OF ADMINISTRATION:
     Route: 048
  5. VALPROATE SODIUM [Suspect]
     Active Substance: VALPROATE SODIUM
     Indication: Product used for unknown indication
     Dosage: DOSAGE: 15,000?UNIT OF MEASUREMENT: MILLIGRAMS?ADMINISTRATION FREQUENCY: TOTAL?ROUTE OF ADMINISTRATI
     Route: 048
  6. DELORAZEPAM [Suspect]
     Active Substance: DELORAZEPAM
     Indication: Product used for unknown indication
     Dosage: DOSAGE: 20?UNIT OF MEASUREMENT: MILLILITER?ADMINISTRATION FREQUENCY: TOTAL?ROUTE OF ADMINISTRATION:
     Route: 048

REACTIONS (3)
  - Toxicity to various agents [Recovering/Resolving]
  - Coma [Recovering/Resolving]
  - Overdose [Unknown]

NARRATIVE: CASE EVENT DATE: 20221001
